FAERS Safety Report 9626270 (Version 2)
Quarter: 2013Q4

REPORT INFORMATION
  Report Type: Spontaneous
  Country: US (occurrence: US)
  Receive Date: 20131016
  Receipt Date: 20131016
  Transmission Date: 20140711
  Serious: Yes (Life-Threatening, Hospitalization)
  Sender: FDA-Public Use
  Company Number: US-BRACCO-009721

PATIENT
  Age: 70 Year
  Sex: Female
  Weight: 90 kg

DRUGS (3)
  1. ISOVUE 300 [Suspect]
     Indication: COMPUTERISED TOMOGRAM
     Route: 042
     Dates: start: 20130429, end: 20130429
  2. LISINOPRIL [Concomitant]
  3. CORGARD [Concomitant]

REACTIONS (5)
  - Anaphylactic reaction [Recovered/Resolved]
  - Pneumonia aspiration [Recovered/Resolved]
  - Cardiac arrest [Recovered/Resolved]
  - Postresuscitation encephalopathy [Recovered/Resolved]
  - Hypokalaemia [Recovered/Resolved]
